FAERS Safety Report 4357892-4 (Version None)
Quarter: 2004Q2

REPORT INFORMATION
  Report Type: 
  Country: None (occurrence: None)
  Receive Date: 20040510
  Receipt Date: 20040427
  Transmission Date: 20050107
  Serious: Yes (Disabling)
  Sender: FDA-Public Use
  Company Number: 04H-075-0259141-00

PATIENT
  Age: 68 Year
  Sex: Male

DRUGS (4)
  1. CIMETIDINE INJECTION (CIMETIDINE) (CIMETIDINE) [Suspect]
     Indication: GASTROINTESTINAL HAEMORRHAGE
     Dosage: 200 MG, EVERY 6 HOURS, INTRAVENOUS
     Route: 042
  2. CIMETIDINE INJECTION (CIMETIDINE) (CIMETIDINE) [Suspect]
     Indication: PROPHYLAXIS
     Dosage: 200 MG, EVERY 6 HOURS, INTRAVENOUS
     Route: 042
  3. PHENYTOIN [Suspect]
     Indication: CONVULSION PROPHYLAXIS
     Dosage: 100 MG, EVERY 8 HOURS, INTRAVENOUS
     Route: 042
  4. DEXAMETHAZONE-PIX [Concomitant]

REACTIONS (9)
  - BEDRIDDEN [None]
  - CEREBRAL HAEMATOMA [None]
  - COMA [None]
  - DRUG INTERACTION [None]
  - HEMIPLEGIA [None]
  - NERVOUS SYSTEM DISORDER [None]
  - PETECHIAE [None]
  - POST PROCEDURAL COMPLICATION [None]
  - THROMBOCYTOPENIA [None]
